FAERS Safety Report 7565954-3 (Version None)
Quarter: 2011Q2

REPORT INFORMATION
  Report Type: 
  Country: None (occurrence: None)
  Receive Date: 20110616
  Receipt Date: 20110601
  Transmission Date: 20111010
  Serious: Yes (Hospitalization, Other)
  Sender: FDA-Public Use
  Company Number: ABR_00134_2011

PATIENT
  Age: 5 Year
  Sex: Male

DRUGS (13)
  1. VALPROATE SODIUM [Suspect]
     Indication: PRODUCT USED FOR UNKNOWN INDICATION
  2. DIAZEPAM [Suspect]
     Indication: STATUS EPILEPTICUS
     Dosage: (DF)
  3. PHENYTOIN [Suspect]
     Indication: STATUS EPILEPTICUS
     Dosage: (DF)
  4. PENTOTHAL [Suspect]
     Indication: STATUS EPILEPTICUS
     Dosage: (DF)
  5. CLOBAZAM [Concomitant]
  6. TAZOCIN (TAZOCIN) (NOT SPECIFIED) [Suspect]
     Indication: PNEUMONIA MYCOPLASMAL
     Dosage: (DF)
  7. LAMOTRIGINE [Suspect]
     Indication: EPILEPSY
     Dosage: (DF)
  8. PARALDEHYDE (PARALDEHYDE) [Suspect]
     Indication: STATUS EPILEPTICUS
     Dosage: (DF)
  9. CLONAZEPAM [Suspect]
     Indication: STATUS EPILEPTICUS
     Dosage: (DF)
  10. CEFOTAXIME SODIUM [Suspect]
     Indication: PNEUMONIA MYCOPLASMAL
     Dosage: (DF)
  11. GENTAMYCIN SULFATE [Suspect]
     Indication: PNEUMONIA MYCOPLASMAL
     Dosage: (DF)
  12. ERYTHROMYCIN ETHYLSUCCINATE [Suspect]
     Indication: PNEUMONIA MYCOPLASMAL
  13. ANTIBIOTICS (ANTIBIOTICS) [Suspect]
     Indication: PRODUCT USED FOR UNKNOWN INDICATION

REACTIONS (15)
  - APHASIA [None]
  - STATUS EPILEPTICUS [None]
  - AKINESIA [None]
  - BRAIN OEDEMA [None]
  - COGNITIVE DISORDER [None]
  - DYSTONIA [None]
  - CEREBRAL ATROPHY [None]
  - HYPOTONIA [None]
  - HYPOXIC-ISCHAEMIC ENCEPHALOPATHY [None]
  - LEARNING DISORDER [None]
  - MYCOPLASMA INFECTION [None]
  - MOVEMENT DISORDER [None]
  - FEBRILE CONVULSION [None]
  - NEUROLOGICAL DECOMPENSATION [None]
  - DEVELOPMENTAL DELAY [None]
